FAERS Safety Report 4488248-1 (Version None)
Quarter: 2004Q4

REPORT INFORMATION
  Report Type: 
  Country: None (occurrence: None)
  Receive Date: 20041021
  Receipt Date: 20041006
  Transmission Date: 20050328
  Serious: Yes (Hospitalization)
  Sender: FDA-Public Use
  Company Number: 2004UW20937

PATIENT
  Sex: Male
  Weight: 90.718 kg

DRUGS (4)
  1. CRESTOR [Suspect]
     Indication: HYPERCHOLESTEROLAEMIA
     Dosage: 10 MG QD PO
     Route: 048
     Dates: start: 20031203, end: 20041003
  2. HYDROCHLOROTHIAZIDE [Suspect]
     Dosage: 25 MG
  3. MICARDIS [Concomitant]
  4. CLARITIN [Concomitant]

REACTIONS (2)
  - HAEMATURIA [None]
  - RHABDOMYOLYSIS [None]
